FAERS Safety Report 19507926 (Version 1)
Quarter: 2021Q3

REPORT INFORMATION
  Report Type: Spontaneous
  Country: JP (occurrence: JP)
  Receive Date: 20210708
  Receipt Date: 20210708
  Transmission Date: 20211014
  Serious: Yes (Life-Threatening, Other)
  Sender: FDA-Public Use
  Company Number: JP-PFIZER INC-2021810345

PATIENT

DRUGS (1)
  1. METHOTREXATE. [Suspect]
     Active Substance: METHOTREXATE
     Dosage: UNK (HIGH?DOSE)
     Route: 042

REACTIONS (1)
  - Drug clearance decreased [Not Recovered/Not Resolved]

NARRATIVE: CASE EVENT DATE: 20210630
